FAERS Safety Report 8769704 (Version 4)
Quarter: 2013Q3

REPORT INFORMATION
  Report Type: Spontaneous
  Country: US (occurrence: US)
  Receive Date: 20120905
  Receipt Date: 20130712
  Transmission Date: 20140515
  Serious: Yes (Hospitalization, Disabling, Other)
  Sender: FDA-Public Use
  Company Number: US-009507513-1208USA012646

PATIENT
  Sex: Female
  Weight: 86.17 kg

DRUGS (3)
  1. NUVARING [Suspect]
     Indication: CONTRACEPTION
     Dosage: UNK
     Route: 067
     Dates: start: 200608, end: 200909
  2. NUVARING [Suspect]
     Dosage: UNK
     Route: 067
     Dates: start: 200608, end: 200909
  3. ADDERALL TABLETS [Suspect]
     Indication: PRODUCT USED FOR UNKNOWN INDICATION

REACTIONS (4)
  - Pulmonary embolism [Unknown]
  - Lymphadenopathy [Unknown]
  - Abdominal hernia [Unknown]
  - Cough [Unknown]
